FAERS Safety Report 16544712 (Version 1)
Quarter: 2019Q3

REPORT INFORMATION
  Report Type: Spontaneous
  Country: US (occurrence: US)
  Receive Date: 20190709
  Receipt Date: 20190709
  Transmission Date: 20191004
  Serious: No
  Sender: FDA-Public Use
  Company Number: US-AMGEN-USASP2019107001

PATIENT
  Age: 78 Year
  Sex: Female

DRUGS (12)
  1. OSIMERTINIB. [Concomitant]
     Active Substance: OSIMERTINIB
     Dosage: UNK
  2. ASPIRINE [Concomitant]
     Active Substance: ASPIRIN
     Dosage: UNK
  3. PRAVASTATIN. [Concomitant]
     Active Substance: PRAVASTATIN
     Dosage: UNK
  4. XGEVA [Suspect]
     Active Substance: DENOSUMAB
     Indication: METASTASES TO BONE
     Dosage: 120 MILLIGRAM, QMO
     Route: 065
     Dates: start: 201810
  5. ATIVAN [Concomitant]
     Active Substance: LORAZEPAM
     Dosage: UNK
  6. BIOTIN [Concomitant]
     Active Substance: BIOTIN
     Dosage: UNK
  7. CALCIUM [Concomitant]
     Active Substance: CALCIUM
     Dosage: UNK
  8. FLAGYL [Concomitant]
     Active Substance: METRONIDAZOLE\METRONIDAZOLE HYDROCHLORIDE
     Dosage: UNK
  9. VITAMINE D [Concomitant]
     Active Substance: CHOLECALCIFEROL
     Dosage: UNK
  10. CIPROFLOXACIN. [Concomitant]
     Active Substance: CIPROFLOXACIN
     Dosage: UNK
  11. FISH OIL [Concomitant]
     Active Substance: FISH OIL
     Dosage: UNK
  12. VITAMINE C [Concomitant]
     Active Substance: ASCORBIC ACID
     Dosage: UNK

REACTIONS (1)
  - Fixed eruption [Recovered/Resolved]

NARRATIVE: CASE EVENT DATE: 2019
